FAERS Safety Report 15936642 (Version 1)
Quarter: 2019Q1

REPORT INFORMATION
  Report Type: Spontaneous
  Country: US (occurrence: US)
  Receive Date: 20190208
  Receipt Date: 20190208
  Transmission Date: 20190417
  Serious: Yes (Hospitalization)
  Sender: FDA-Public Use
  Company Number: US-PRINSTON PHARMACEUTICAL INC.-2019PRN00123

PATIENT
  Sex: Male

DRUGS (1)
  1. IRBESARTAN AND HYDROCHLOROTHIAZIDE [Suspect]
     Active Substance: HYDROCHLOROTHIAZIDE\IRBESARTAN
     Dosage: 1 TABLETS, UNK

REACTIONS (2)
  - Atypical pneumonia [Unknown]
  - Lymphadenopathy [Recovered/Resolved]
